FAERS Safety Report 7757761-3 (Version None)
Quarter: 2011Q3

REPORT INFORMATION
  Report Type: 
  Country: None (occurrence: None)
  Receive Date: 20110918
  Receipt Date: 20110908
  Transmission Date: 20111222
  Serious: Yes (Other)
  Sender: FDA-Public Use
  Company Number: HU-ASTRAZENECA-2011SE54632

PATIENT
  Age: 55 Year
  Sex: Female

DRUGS (3)
  1. BUPROPION HYDROCHLORIDE [Concomitant]
     Indication: SCHIZOPHRENIA
  2. XANAX [Concomitant]
     Indication: SCHIZOPHRENIA
  3. SEROQUEL XR [Suspect]
     Indication: SCHIZOPHRENIA
     Route: 048
     Dates: start: 20110422

REACTIONS (1)
  - SCHIZOPHRENIA [None]
